FAERS Safety Report 17524756 (Version 1)
Quarter: 2020Q1

REPORT INFORMATION
  Report Type: Report from Study
  Country: FR (occurrence: FR)
  Receive Date: 20200310
  Receipt Date: 20200310
  Transmission Date: 20200409
  Serious: Yes (Other)
  Sender: FDA-Public Use
  Company Number: FR-AMGEN-FRANI2020039729

PATIENT
  Age: 21 Year
  Sex: Female

DRUGS (1)
  1. ERENUMAB [Suspect]
     Active Substance: ERENUMAB
     Indication: MIGRAINE
     Dosage: 70 MILLIGRAM
     Route: 065
     Dates: start: 20191022, end: 20200116

REACTIONS (1)
  - Depression [Unknown]

NARRATIVE: CASE EVENT DATE: 20200109
